FAERS Safety Report 5164990-4 (Version None)
Quarter: 2006Q4

REPORT INFORMATION
  Report Type: 
  Country: None (occurrence: None)
  Receive Date: 20061124
  Receipt Date: 20061116
  Transmission Date: 20070319
  Serious: Yes (Death)
  Sender: FDA-Public Use
  Company Number: 2006130417

PATIENT
  Age: 64 Year
  Sex: Female

DRUGS (2)
  1. SERTRALINE [Suspect]
  2. DIAZEPAM [Suspect]

REACTIONS (3)
  - COMPLETED SUICIDE [None]
  - DROWNING [None]
  - OVERDOSE [None]
